FAERS Safety Report 11193014 (Version 2)
Quarter: 2015Q3

REPORT INFORMATION
  Report Type: Report from Study
  Country: DE (occurrence: DE)
  Receive Date: 20150616
  Receipt Date: 20150714
  Transmission Date: 20151125
  Serious: Yes (Hospitalization)
  Sender: FDA-Public Use
  Company Number: DE-ABBVIE-15P-062-1397967-00

PATIENT
  Sex: Female

DRUGS (1)
  1. DUODOPA [Suspect]
     Active Substance: CARBIDOPA\LEVODOPA
     Indication: PARKINSON^S DISEASE
     Dosage: MD 6.0 ML, CRD 2.2 ML/H, ED 0.9 ML
     Route: 050
     Dates: start: 20120215

REACTIONS (3)
  - Device dislocation [Recovering/Resolving]
  - Musculoskeletal stiffness [Recovering/Resolving]
  - Hypokinesia [Not Recovered/Not Resolved]
